FAERS Safety Report 16728519 (Version 1)
Quarter: 2019Q3

REPORT INFORMATION
  Report Type: Spontaneous
  Country: US (occurrence: US)
  Receive Date: 20190822
  Receipt Date: 20190822
  Transmission Date: 20191005
  Serious: No
  Sender: FDA-Public Use
  Company Number: US-TEVA-2019-US-1096903

PATIENT
  Sex: Female

DRUGS (1)
  1. AUSTEDO [Suspect]
     Active Substance: DEUTETRABENAZINE
     Indication: HUNTINGTON^S DISEASE
     Dosage: 42 MILLIGRAM DAILY; ONE 9 MG TABLET AND ONE 12 MG TABLET
     Route: 048
     Dates: start: 201907

REACTIONS (2)
  - Insomnia [Unknown]
  - Sleep disorder [Unknown]
